FAERS Safety Report 25844111 (Version 1)
Quarter: 2025Q3

REPORT INFORMATION
  Report Type: Spontaneous
  Country: EU (occurrence: EU)
  Receive Date: 20250925
  Receipt Date: 20250925
  Transmission Date: 20251021
  Serious: Yes (Death, Other)
  Sender: GLAXOSMITHKLINE
  Company Number: EU-GSK-FR2025EME122081

PATIENT
  Age: 78 Year
  Sex: Male
  Weight: 79 kg

DRUGS (1)
  1. MOMELOTINIB [Suspect]
     Active Substance: MOMELOTINIB
     Indication: Myelofibrosis
     Dosage: 1 DF, QD

REACTIONS (9)
  - Septic shock [Fatal]
  - Thrombosis [Fatal]
  - Respiratory distress [Unknown]
  - Cholecystitis acute [Unknown]
  - Thrombocytopenia [Unknown]
  - Gastroenteritis [Unknown]
  - Pyrexia [Unknown]
  - Leukocytosis [Unknown]
  - Anaemia [Unknown]

NARRATIVE: CASE EVENT DATE: 20250623
